FAERS Safety Report 8853887 (Version 1)
Quarter: 2012Q4

REPORT INFORMATION
  Report Type: 
  Country: JP (occurrence: JP)
  Receive Date: 20121022
  Receipt Date: 20121022
  Transmission Date: 20130627
  Serious: Yes (Other)
  Sender: FDA-Public Use
  Company Number: PHHY2012JP068991

PATIENT
  Age: 9 None
  Sex: Male
  Weight: 39 kg

DRUGS (4)
  1. TEGRETOL [Suspect]
     Indication: EPILEPSY
     Dosage: 80 mg,daily
     Route: 048
     Dates: start: 20111214, end: 20111220
  2. TEGRETOL [Suspect]
     Dosage: 160 mg, Daily
     Route: 048
     Dates: start: 20111221, end: 20111227
  3. TEGRETOL [Suspect]
     Dosage: 240 mg, daily
     Route: 048
     Dates: start: 20111228, end: 20120521
  4. TEGRETOL [Suspect]
     Dosage: 120 mg, daily
     Route: 048
     Dates: start: 20120521, end: 20120605

REACTIONS (4)
  - Blood immunoglobulin A decreased [Recovered/Resolved]
  - Blood immunoglobulin M decreased [Recovered/Resolved]
  - Ventricular extrasystoles [Recovered/Resolved]
  - Dry eye [Recovered/Resolved]
